FAERS Safety Report 6598747-4 (Version None)
Quarter: 2010Q1

REPORT INFORMATION
  Report Type: 
  Country: None (occurrence: None)
  Receive Date: 20100224
  Receipt Date: 20100212
  Transmission Date: 20100710
  Serious: Yes (Life-Threatening, Hospitalization)
  Sender: FDA-Public Use
  Company Number: DE-WYE-H13578110

PATIENT
  Age: 83 Year
  Sex: Female

DRUGS (11)
  1. PANTOZOL [Suspect]
     Dosage: 20 AND/OR 40 MG DAILY
     Route: 048
     Dates: start: 20090726, end: 20090730
  2. PANTOZOL [Suspect]
     Dosage: 20 AND/OR 40 MG DAILY
     Route: 048
     Dates: start: 20090801, end: 20090815
  3. CIPRAMIL [Suspect]
     Route: 048
     Dates: start: 20090717, end: 20090816
  4. PIPERACILLIN SODIUM W/TAZOBACTAM SODIUM [Suspect]
     Route: 042
     Dates: start: 20090803, end: 20090803
  5. PIPERACILLIN SODIUM W/TAZOBACTAM SODIUM [Suspect]
     Route: 042
     Dates: start: 20090804, end: 20090809
  6. CEFTRIAXONE [Suspect]
     Route: 042
     Dates: start: 20090803, end: 20090809
  7. NOVAMINSULFON-RATIOPHARM [Suspect]
     Route: 048
     Dates: start: 20090508, end: 20090616
  8. NOVAMINSULFON-RATIOPHARM [Suspect]
     Route: 048
     Dates: start: 20090618, end: 20090721
  9. NOVAMINSULFON-RATIOPHARM [Suspect]
     Route: 048
     Dates: start: 20090803, end: 20090815
  10. HALDOL [Suspect]
     Route: 048
     Dates: start: 20090808, end: 20090813
  11. AMPICILLIN AND SULBACTAM [Suspect]
     Route: 048
     Dates: start: 20090728, end: 20090804

REACTIONS (2)
  - INFECTION [None]
  - PANCYTOPENIA [None]
